FAERS Safety Report 24831987 (Version 4)
Quarter: 2025Q3

REPORT INFORMATION
  Report Type: Spontaneous
  Country: BR (occurrence: BR)
  Receive Date: 20250110
  Receipt Date: 20250810
  Transmission Date: 20251021
  Serious: Yes (Death, Hospitalization, Other)
  Sender: ALEXION PHARMACEUTICALS
  Company Number: BR-ASTRAZENECA-202501SAM004803BR

PATIENT
  Age: 79 Year
  Sex: Female
  Weight: 49 kg

DRUGS (1)
  1. TAGRISSO [Suspect]
     Active Substance: OSIMERTINIB
     Indication: Lung neoplasm malignant
     Dosage: 80 MILLIGRAM, QD, A TABLET DAILY
     Route: 065
     Dates: start: 20240925

REACTIONS (3)
  - Renal disorder [Fatal]
  - Condition aggravated [Fatal]
  - Lung disorder [Fatal]

NARRATIVE: CASE EVENT DATE: 20241223
